FAERS Safety Report 7762296-8 (Version None)
Quarter: 2011Q3

REPORT INFORMATION
  Report Type: 
  Country: None (occurrence: None)
  Receive Date: 20110920
  Receipt Date: 20110914
  Transmission Date: 20111222
  Serious: Yes (Other)
  Sender: FDA-Public Use
  Company Number: US-ROCHE-790617

PATIENT
  Sex: Male

DRUGS (1)
  1. AVASTIN [Suspect]
     Dosage: DOSE: 1.25 MG/0.05 ML, FREQUENCY: 2
     Route: 031
     Dates: start: 20110708, end: 20110708

REACTIONS (5)
  - PRODUCT QUALITY ISSUE [None]
  - VISUAL ACUITY REDUCED [None]
  - ENDOPHTHALMITIS [None]
  - BLINDNESS [None]
  - STREPTOCOCCUS TEST POSITIVE [None]
